FAERS Safety Report 15413053 (Version 1)
Quarter: 2018Q3

REPORT INFORMATION
  Report Type: Spontaneous
  Country: ZA (occurrence: ZA)
  Receive Date: 20180921
  Receipt Date: 20180921
  Transmission Date: 20181010
  Serious: Yes (Life-Threatening)
  Sender: FDA-Public Use
  Company Number: ZA-TEVA-2018-ZA-955009

PATIENT
  Age: 59 Year
  Sex: Female
  Weight: 71 kg

DRUGS (5)
  1. DEXONA [Concomitant]
     Active Substance: DEXAMETHASONE
     Route: 042
  2. CARBOSIN [Suspect]
     Active Substance: CARBOPLATIN
     Dosage: 510 MG EVERY 3 WEEKS
     Route: 042
     Dates: start: 20180731
  3. CYTIGEM [Concomitant]
     Active Substance: GEMCITABINE HYDROCHLORIDE
     Indication: OVARIAN CANCER
     Dosage: 1710 MILLIGRAM; D1, D8 EVERY 3 WEEKS
     Route: 042
     Dates: start: 20180731
  4. GRANISETRON [Concomitant]
     Active Substance: GRANISETRON
     Indication: OVARIAN CANCER
     Dosage: 3MG; D1, D8 EVERY 3 WEEKS
     Route: 042
     Dates: start: 20180731
  5. CARBOSIN [Suspect]
     Active Substance: CARBOPLATIN
     Indication: OVARIAN CANCER
     Route: 042

REACTIONS (5)
  - Nasal congestion [Recovered/Resolved]
  - Restlessness [Recovered/Resolved]
  - Dyspnoea [Recovered/Resolved]
  - Pruritus [Recovered/Resolved]
  - Throat irritation [Recovered/Resolved]

NARRATIVE: CASE EVENT DATE: 20180911
